FAERS Safety Report 8305899-4 (Version None)
Quarter: 2012Q2

REPORT INFORMATION
  Report Type: 
  Country: None (occurrence: None)
  Receive Date: 20120418
  Receipt Date: 20120404
  Transmission Date: 20120825
  Serious: Yes (Hospitalization)
  Sender: FDA-Public Use
  Company Number: FR-008156

PATIENT
  Age: 32 Year
  Sex: Female

DRUGS (3)
  1. MENOPUR [Suspect]
     Indication: IN VITRO FERTILISATION
     Dosage: (150 IU QD SUBCUTANEOUS)
     Route: 058
     Dates: start: 20120204, end: 20120217
  2. TRIPTORELIN (DECAPEPTYL) [Suspect]
     Indication: IN VITRO FERTILISATION
     Dosage: INTRAMUSCULAR
     Route: 030
     Dates: start: 20120120, end: 20120120
  3. OVIDREL [Suspect]
     Indication: IN VITRO FERTILISATION
     Dosage: SUBCUTANEOUS
     Route: 058
     Dates: start: 20120218, end: 20120218

REACTIONS (4)
  - ASCITES [None]
  - OLIGURIA [None]
  - OVARIAN HYPERSTIMULATION SYNDROME [None]
  - HUMAN CHORIONIC GONADOTROPIN POSITIVE [None]
